FAERS Safety Report 6157811-4 (Version None)
Quarter: 2009Q2

REPORT INFORMATION
  Report Type: 
  Country: None (occurrence: None)
  Receive Date: 20090414
  Receipt Date: 20090402
  Transmission Date: 20091009
  Serious: Yes (Hospitalization)
  Sender: FDA-Public Use
  Company Number: RENA-1000418

PATIENT
  Age: 50 Year
  Sex: Female

DRUGS (1)
  1. RENAGEL [Suspect]
     Indication: HYPERPHOSPHATAEMIA
     Dosage: 2.5 G, TID, ORAL
     Route: 048
     Dates: end: 20090207

REACTIONS (1)
  - LARGE INTESTINE PERFORATION [None]
